FAERS Safety Report 4575654-X (Version None)
Quarter: 2005Q1

REPORT INFORMATION
  Report Type: 
  Country: None (occurrence: None)
  Receive Date: 20050209
  Receipt Date: 20050128
  Transmission Date: 20050727
  Serious: Yes (Hospitalization)
  Sender: FDA-Public Use
  Company Number: AU-GLAXOSMITHKLINE-B0370525A

PATIENT
  Age: 35 Year
  Sex: Female
  Weight: 59 kg

DRUGS (2)
  1. IMIGRAN [Suspect]
     Indication: MIGRAINE
     Dosage: 100MG TWICE PER DAY
     Route: 048
     Dates: start: 19921012, end: 19921013
  2. PETHIDINE HYDROCHLORIDE [Suspect]
     Indication: MIGRAINE
     Dosage: 100MG SINGLE DOSE
     Route: 030
     Dates: start: 19920924

REACTIONS (2)
  - DRUG EXPOSURE DURING PREGNANCY [None]
  - INTRA-UTERINE DEATH [None]
